FAERS Safety Report 14585479 (Version 10)
Quarter: 2018Q4

REPORT INFORMATION
  Report Type: Spontaneous
  Country: US (occurrence: US)
  Receive Date: 20180301
  Receipt Date: 20181019
  Transmission Date: 20190204
  Serious: Yes (Other)
  Sender: FDA-Public Use
  Company Number: US-PFIZER INC-2018081312

PATIENT
  Age: 49 Year
  Sex: Male
  Weight: 100 kg

DRUGS (10)
  1. METFORMIN [Concomitant]
     Active Substance: METFORMIN HYDROCHLORIDE
     Dosage: UNK
  2. INSULIN [Concomitant]
     Active Substance: INSULIN NOS
     Indication: DIABETES MELLITUS
     Dosage: UNK
  3. SUTENT [Suspect]
     Active Substance: SUNITINIB MALATE
     Indication: RENAL CANCER
     Dosage: 50 MG, CYCLIC (28 DAYS ON/14 DAYS OFF)
     Dates: start: 20180209
  4. GLIPIZIDE. [Concomitant]
     Active Substance: GLIPIZIDE
     Dosage: UNK
  5. SUTENT [Suspect]
     Active Substance: SUNITINIB MALATE
     Dosage: 50 MG, CYCLIC, (28 DAYS ON/14 DAYS OFF)
     Dates: end: 20180401
  6. SUTENT [Suspect]
     Active Substance: SUNITINIB MALATE
     Dosage: 50 MG, CYCLIC (2 WEEKS ON / 1 WEEK OFF NOW)
  7. LOVASTATIN. [Concomitant]
     Active Substance: LOVASTATIN
     Dosage: UNK
  8. SUTENT [Suspect]
     Active Substance: SUNITINIB MALATE
     Dosage: 50 MG, CYCLIC, (28 DAYS ON/14 DAYS OFF)
     Dates: start: 20180402
  9. SUTENT [Suspect]
     Active Substance: SUNITINIB MALATE
     Dosage: 50 MG, CYCLIC, [ONE WEEK ON/ONE WEEK OFF]
     Dates: start: 20180618, end: 20180717
  10. SUTENT [Suspect]
     Active Substance: SUNITINIB MALATE
     Dosage: 37.5 MG, CYCLIC (2WEEKS ON / 1WEEK OFF)

REACTIONS (13)
  - Rash macular [Unknown]
  - Blood glucose fluctuation [Recovered/Resolved]
  - Mass [Unknown]
  - Constipation [Unknown]
  - Skin lesion [Unknown]
  - Skin exfoliation [Recovered/Resolved]
  - Skin discolouration [Unknown]
  - Blister [Recovered/Resolved]
  - Nephrolithiasis [Unknown]
  - Dyspepsia [Recovering/Resolving]
  - Chromaturia [Unknown]
  - Lacrimation increased [Unknown]
  - Cough [Unknown]

NARRATIVE: CASE EVENT DATE: 2018
